FAERS Safety Report 17307662 (Version 1)
Quarter: 2020Q1

REPORT INFORMATION
  Report Type: Spontaneous
  Country: NL (occurrence: NL)
  Receive Date: 20200123
  Receipt Date: 20200123
  Transmission Date: 20200409
  Serious: Yes (Disabling)
  Sender: FDA-Public Use
  Company Number: NL-TEVA-2020-NL-1171664

PATIENT
  Age: 89 Year
  Sex: Female
  Weight: 42 kg

DRUGS (3)
  1. OMEPRAZOL [Suspect]
     Active Substance: OMEPRAZOLE
     Indication: GASTRIC ULCER
     Dosage: 20 MILLIGRAM DAILY;
     Dates: start: 201709
  2. ACETYLSALICYLZUUR [Concomitant]
     Active Substance: ASPIRIN
  3. OMEPRAZOL [Suspect]
     Active Substance: OMEPRAZOLE
     Indication: PROPHYLAXIS AGAINST GASTROINTESTINAL ULCER

REACTIONS (4)
  - Hypoacusis [Not Recovered/Not Resolved]
  - Osteoporosis [Recovered/Resolved]
  - Skin irritation [Not Recovered/Not Resolved]
  - Memory impairment [Not Recovered/Not Resolved]

NARRATIVE: CASE EVENT DATE: 20181001
